FAERS Safety Report 16038387 (Version 1)
Quarter: 2019Q1

REPORT INFORMATION
  Report Type: Spontaneous
  Country: US (occurrence: US)
  Receive Date: 20190305
  Receipt Date: 20190305
  Transmission Date: 20190418
  Serious: No
  Sender: FDA-Public Use
  Company Number: US-009507513-1903USA000159

PATIENT
  Sex: Male

DRUGS (6)
  1. HYDRENE [Concomitant]
     Active Substance: HYDROCHLOROTHIAZIDE\TRIAMTERENE
     Dosage: ^10 MILLILITER^
  2. BELSOMRA [Suspect]
     Active Substance: SUVOREXANT
     Indication: INSOMNIA
     Dosage: 5 MG, QD
     Route: 048
  3. BELSOMRA [Suspect]
     Active Substance: SUVOREXANT
     Dosage: TWO PILLS TOTALING 10MG, QD
     Route: 048
     Dates: end: 20190223
  4. METOPROLOL. [Concomitant]
     Active Substance: METOPROLOL
     Dosage: ^50 MILLILITER^
  5. HYTRIN [Concomitant]
     Active Substance: TERAZOSIN HYDROCHLORIDE
     Dosage: UNK
  6. IM HEALTHSCIENCE IBGARD [Concomitant]
     Dosage: UNK

REACTIONS (3)
  - Dry mouth [Not Recovered/Not Resolved]
  - Drug ineffective [Not Recovered/Not Resolved]
  - Aphasia [Not Recovered/Not Resolved]
